FAERS Safety Report 4565263-0 (Version None)
Quarter: 2005Q1

REPORT INFORMATION
  Report Type: 
  Country: None (occurrence: None)
  Receive Date: 20050131
  Receipt Date: 20041215
  Transmission Date: 20050727
  Serious: Yes (Other)
  Sender: FDA-Public Use
  Company Number: PHEH2004US13338

PATIENT
  Age: 51 Year
  Sex: Female

DRUGS (2)
  1. ZELNORM [Suspect]
     Indication: IRRITABLE BOWEL SYNDROME
     Dosage: 2 MG, BID
     Route: 048
     Dates: start: 20030601
  2. CLINDAMYCIN [Suspect]

REACTIONS (10)
  - ABDOMINAL PAIN [None]
  - CLOSTRIDIUM COLITIS [None]
  - DIARRHOEA [None]
  - DRUG INEFFECTIVE [None]
  - ENDODONTIC PROCEDURE [None]
  - HAEMORRHOIDS [None]
  - STRESS [None]
  - TOOTH DISORDER [None]
  - TOOTH INFECTION [None]
  - WEIGHT DECREASED [None]
